FAERS Safety Report 9337723 (Version 2)
Quarter: 2013Q3

REPORT INFORMATION
  Report Type: Report from Study
  Country: BR (occurrence: BR)
  Receive Date: 20130607
  Receipt Date: 20130802
  Transmission Date: 20140515
  Serious: Yes (Other)
  Sender: FDA-Public Use
  Company Number: BR-ABBOTT-13P-020-1100271-00

PATIENT
  Sex: Female
  Weight: 105 kg

DRUGS (4)
  1. HUMIRA [Suspect]
     Indication: PSORIASIS
     Dosage: DAY 0
     Route: 058
     Dates: start: 20121112
  2. HUMIRA [Suspect]
     Route: 058
     Dates: start: 20121112, end: 20121224
  3. HUMIRA [Suspect]
     Route: 058
     Dates: end: 201302
  4. HUMIRA [Suspect]
     Route: 058
     Dates: start: 201303

REACTIONS (2)
  - Uterine disorder [Unknown]
  - Nephrolithiasis [Recovering/Resolving]
